FAERS Safety Report 11795518 (Version 1)
Quarter: 2015Q4

REPORT INFORMATION
  Report Type: Spontaneous
  Country: RU (occurrence: RU)
  Receive Date: 20151202
  Receipt Date: 20151202
  Transmission Date: 20160305
  Serious: Yes (Other)
  Sender: FDA-Public Use
  Company Number: PHHY2015RU154584

PATIENT
  Age: 27 Year
  Sex: Male
  Weight: 73 kg

DRUGS (3)
  1. TACROCEL [Suspect]
     Active Substance: TACROLIMUS
     Indication: IMMUNOSUPPRESSANT DRUG THERAPY
     Dosage: 3 MG, UNK
     Route: 048
     Dates: start: 20150504, end: 20150907
  2. PREDNISOLONE. [Concomitant]
     Active Substance: PREDNISOLONE
     Indication: IMMUNOSUPPRESSION
     Route: 065
     Dates: start: 20150419
  3. MYFORTIC [Concomitant]
     Active Substance: MYCOPHENOLATE SODIUM
     Indication: IMMUNOSUPPRESSION
     Route: 065
     Dates: start: 20150419

REACTIONS (3)
  - Kidney transplant rejection [Not Recovered/Not Resolved]
  - Azotaemia [Not Recovered/Not Resolved]
  - Drug level changed [Not Recovered/Not Resolved]

NARRATIVE: CASE EVENT DATE: 20150601
